FAERS Safety Report 10249909 (Version 3)
Quarter: 2014Q3

REPORT INFORMATION
  Report Type: Spontaneous
  Country: US (occurrence: US)
  Receive Date: 20140620
  Receipt Date: 20140822
  Transmission Date: 20150326
  Serious: No
  Sender: FDA-Public Use
  Company Number: US-PFIZER INC-2014165487

PATIENT
  Age: 46 Year
  Sex: Male

DRUGS (3)
  1. FISH OIL [Concomitant]
     Active Substance: FISH OIL
     Dosage: UNK
  2. PROMETHAZINE [Concomitant]
     Active Substance: PROMETHAZINE\PROMETHAZINE HYDROCHLORIDE
     Dosage: UNK
  3. SUTENT [Suspect]
     Active Substance: SUNITINIB MALATE
     Indication: RENAL CELL CARCINOMA
     Dosage: 50 MG, DAILY (12.5MG X 2 IN THE AM AND 2 IN THE PM, 1 WEEK ON AND 1 WEEK OFF )
     Dates: end: 20140812

REACTIONS (7)
  - Pain in extremity [Unknown]
  - Fungal infection [Unknown]
  - Hypoaesthesia [Unknown]
  - Disease progression [Unknown]
  - Fatigue [Unknown]
  - Paraesthesia [Unknown]
  - Renal cell carcinoma [Unknown]
